FAERS Safety Report 24548476 (Version 1)
Quarter: 2024Q4

REPORT INFORMATION
  Report Type: Spontaneous
  Country: SI (occurrence: SI)
  Receive Date: 20241025
  Receipt Date: 20241025
  Transmission Date: 20250115
  Serious: Yes (Other)
  Sender: REGENERON
  Company Number: SI-SA-2024SA306581

PATIENT

DRUGS (4)
  1. PRALUENT [Suspect]
     Active Substance: ALIROCUMAB
     Indication: Hypercholesterolaemia
     Dosage: 75 MG, QOW
     Dates: start: 201705
  2. PRALUENT [Suspect]
     Active Substance: ALIROCUMAB
     Dosage: 150 MG, QOW
     Dates: end: 20240930
  3. REPATHA [Suspect]
     Active Substance: EVOLOCUMAB
     Indication: Hypercholesterolaemia
     Dosage: 150 MG, QOW
     Dates: start: 201705
  4. REPATHA [Suspect]
     Active Substance: EVOLOCUMAB
     Dosage: 420 MG, QM
     Dates: end: 20240930

REACTIONS (10)
  - Erectile dysfunction [Unknown]
  - Arthralgia [Unknown]
  - Fatigue [Unknown]
  - Malaise [Unknown]
  - Eye disorder [Unknown]
  - Insomnia [Unknown]
  - Diarrhoea [Unknown]
  - Influenza like illness [Unknown]
  - Pruritus [Unknown]
  - Myalgia [Unknown]
